FAERS Safety Report 9394611 (Version 1)
Quarter: 2013Q3

REPORT INFORMATION
  Report Type: Report from Study
  Country: CA (occurrence: CA)
  Receive Date: 20130711
  Receipt Date: 20130711
  Transmission Date: 20140515
  Serious: Yes (Hospitalization)
  Sender: FDA-Public Use
  Company Number: CA-JNJFOC-20130706826

PATIENT
  Age: 23 Year
  Sex: Male
  Weight: 76.5 kg

DRUGS (4)
  1. REMICADE [Suspect]
     Indication: COLITIS ULCERATIVE
     Route: 042
     Dates: start: 20130528
  2. AZATHIOPRINE [Concomitant]
     Route: 065
  3. PREDNISONE [Concomitant]
     Route: 065
  4. SALOFALK [Concomitant]
     Route: 065

REACTIONS (1)
  - Colectomy total [Unknown]
